FAERS Safety Report 9272534 (Version 1)
Quarter: 2013Q2

REPORT INFORMATION
  Report Type: Spontaneous
  Country: US (occurrence: US)
  Receive Date: 20130506
  Receipt Date: 20130506
  Transmission Date: 20140414
  Serious: No
  Sender: FDA-Public Use
  Company Number: US-ASTRAZENECA-2012SE83107

PATIENT
  Sex: Female

DRUGS (4)
  1. PRILOSEC OTC [Suspect]
     Indication: DYSPEPSIA
     Route: 048
     Dates: start: 20121018, end: 20121018
  2. DIOVAN [Concomitant]
  3. SINUS MEDICATION [Concomitant]
  4. TYLENOL [Concomitant]

REACTIONS (4)
  - Feeling jittery [Unknown]
  - Nervousness [Unknown]
  - Inappropriate schedule of drug administration [Unknown]
  - Wrong drug administered [Unknown]
